FAERS Safety Report 9229569 (Version 1)
Quarter: 2013Q2

REPORT INFORMATION
  Report Type: Spontaneous
  Country: DE (occurrence: DE)
  Receive Date: 20130414
  Receipt Date: 20130414
  Transmission Date: 20140414
  Serious: Yes (Hospitalization)
  Sender: FDA-Public Use
  Company Number: DE-B.I. PHARMACEUTICALS,INC./RIDGEFIELD-2013-DE-01039DE

PATIENT
  Age: 84 Year
  Sex: Female
  Weight: 70 kg

DRUGS (1)
  1. PRADAXA [Suspect]
     Indication: ATRIAL FIBRILLATION
     Dosage: 110 MG
     Route: 048
     Dates: start: 201111, end: 201209

REACTIONS (1)
  - Normochromic normocytic anaemia [Not Recovered/Not Resolved]
